FAERS Safety Report 9897553 (Version 2)
Quarter: 2014Q3

REPORT INFORMATION
  Report Type: Spontaneous
  Country: US (occurrence: US)
  Receive Date: 20140214
  Receipt Date: 20140812
  Transmission Date: 20150326
  Serious: Yes (Hospitalization)
  Sender: FDA-Public Use
  Company Number: US-009507513-1402USA006718

PATIENT
  Sex: Female
  Weight: 99.59 kg

DRUGS (1)
  1. NUVARING [Suspect]
     Active Substance: ETHINYL ESTRADIOL\ETONOGESTREL
     Indication: MENSTRUATION IRREGULAR
     Dosage: UNK
     Route: 067
     Dates: start: 20091220, end: 20110315

REACTIONS (9)
  - Fall [Unknown]
  - Deep vein thrombosis [Unknown]
  - Intracranial venous sinus thrombosis [Unknown]
  - Hirsutism [Unknown]
  - Off label use [Unknown]
  - Polycystic ovaries [Unknown]
  - Skin irritation [Unknown]
  - Gastrooesophageal reflux disease [Unknown]
  - Lipoma excision [Unknown]

NARRATIVE: CASE EVENT DATE: 20091220
